FAERS Safety Report 11137766 (Version 1)
Quarter: 2015Q2

REPORT INFORMATION
  Report Type: Spontaneous
  Country: US (occurrence: US)
  Receive Date: 20150526
  Receipt Date: 20150526
  Transmission Date: 20150821
  Serious: No
  Sender: FDA-Public Use
  Company Number: US-MALLINCKRODT-T201500895

PATIENT
  Sex: Female

DRUGS (2)
  1. H.P. ACTHAR [Suspect]
     Active Substance: CORTICOTROPIN
     Dosage: 40 U, TWICE PER WEEK
     Route: 065
     Dates: start: 20150119
  2. H.P. ACTHAR [Suspect]
     Active Substance: CORTICOTROPIN
     Indication: DERMATOMYOSITIS
     Dosage: 80 U, TWICE PER WEEK
     Route: 065
     Dates: start: 20150114, end: 20150118

REACTIONS (2)
  - Headache [Unknown]
  - Musculoskeletal stiffness [Unknown]
